FAERS Safety Report 19031556 (Version 1)
Quarter: 2021Q1

REPORT INFORMATION
  Report Type: Spontaneous
  Country: CA (occurrence: CA)
  Receive Date: 20210319
  Receipt Date: 20210319
  Transmission Date: 20210420
  Serious: Yes (Death)
  Sender: FDA-Public Use
  Company Number: None

PATIENT
  Age: 74 Year
  Sex: Male
  Weight: 101.25 kg

DRUGS (8)
  1. VITAMIN C [Concomitant]
     Active Substance: ASCORBIC ACID
  2. BLOOD PRESSURE [Concomitant]
  3. BLOOD THINNER [Concomitant]
     Active Substance: UNSPECIFIED INGREDIENT
  4. VITAMIN D [Concomitant]
     Active Substance: VITAMIN D NOS
  5. KEYTRUDA [Suspect]
     Active Substance: PEMBROLIZUMAB
     Indication: POSTOPERATIVE CARE
     Route: 042
     Dates: start: 20200220, end: 20200715
  6. KEYTRUDA [Suspect]
     Active Substance: PEMBROLIZUMAB
     Indication: PROPHYLAXIS
     Route: 042
     Dates: start: 20200220, end: 20200715
  7. CHOLESTEROL [Concomitant]
     Active Substance: CHOLESTEROL
  8. KIDNEY [Concomitant]

REACTIONS (1)
  - Toxicity to various agents [None]

NARRATIVE: CASE EVENT DATE: 20200925
